FAERS Safety Report 22149821 (Version 3)
Quarter: 2023Q2

REPORT INFORMATION
  Report Type: Report from Study
  Country: US (occurrence: US)
  Receive Date: 20230329
  Receipt Date: 20230620
  Transmission Date: 20230721
  Serious: Yes (Other)
  Sender: FDA-Public Use
  Company Number: US-ABBVIE-4706835

PATIENT
  Age: 65 Year
  Sex: Male
  Weight: 129.27 kg

DRUGS (4)
  1. SKYRIZI [Suspect]
     Active Substance: RISANKIZUMAB-RZAA
     Indication: Psoriatic arthropathy
     Dosage: WEEK 4 FORM STRENGTH: 150 MG
     Route: 058
     Dates: start: 20230307, end: 20230403
  2. SKYRIZI [Suspect]
     Active Substance: RISANKIZUMAB-RZAA
     Indication: Psoriasis
     Dosage: FORM STRENGTH: 150 MG?FIRST ADMIN DATE- APR 2023
     Route: 058
  3. SKYRIZI [Suspect]
     Active Substance: RISANKIZUMAB-RZAA
     Indication: Psoriasis
     Dosage: WEEK 0 FORM STRENGTH: 150 MG
     Route: 058
     Dates: start: 20230331
  4. SKYRIZI [Suspect]
     Active Substance: RISANKIZUMAB-RZAA
     Route: 058

REACTIONS (5)
  - Subcutaneous abscess [Recovered/Resolved]
  - Staphylococcal skin infection [Recovering/Resolving]
  - Subcutaneous abscess [Unknown]
  - Loss of personal independence in daily activities [Not Recovered/Not Resolved]
  - Fungal infection [Unknown]

NARRATIVE: CASE EVENT DATE: 20230301
